FAERS Safety Report 4752562-2 (Version None)
Quarter: 2005Q3

REPORT INFORMATION
  Report Type: 
  Country: None (occurrence: None)
  Receive Date: 20050823
  Receipt Date: 20050812
  Transmission Date: 20060218
  Serious: Yes (Hospitalization)
  Sender: FDA-Public Use
  Company Number: 200512515GDS

PATIENT
  Age: 69 Year
  Sex: Male

DRUGS (6)
  1. ASPIRIN [Suspect]
     Indication: HYPERTENSIVE CARDIOMYOPATHY
     Dosage: 100 MG, TOTAL DAILY, ORAL
     Route: 048
  2. SINTROM [Suspect]
     Indication: HYPERTENSIVE CARDIOMYOPATHY
     Dosage: PRN, ORAL
     Route: 048
     Dates: end: 20050625
  3. PLAVIX [Suspect]
     Indication: HYPERTENSIVE CARDIOMYOPATHY
     Dosage: 75 MG, TOTAL DAILY, ORAL
     Route: 048
  4. PAANTOPRAZOLE [Concomitant]
  5. ATORVASTATIN CALCIUM [Concomitant]
  6. ENLAPRIL [Concomitant]

REACTIONS (4)
  - ANAEMIA [None]
  - HAEMORRHOIDS [None]
  - NODULE [None]
  - RECTAL HAEMORRHAGE [None]
